FAERS Safety Report 9238236 (Version 1)
Quarter: 2013Q1

REPORT INFORMATION
  Report Type: Spontaneous
  Country: US (occurrence: None)
  Receive Date: 20121107
  Receipt Date: 20121107
  Transmission Date: 20140127
  Serious: Yes (Other)
  Sender: FDA-Public Use
  Company Number: E2B_00000226

PATIENT
  Age: 76 Year
  Sex: Female
  Weight: 77.11 kg

DRUGS (5)
  1. LISINOPRIL [Suspect]
     Indication: HYPERTENSION
     Route: 048
  2. LISINOPRIL [Suspect]
     Indication: CARDIAC FAILURE CONGESTIVE
     Route: 048
  3. CARVEDILOL (COREG) (TABLETS) [Concomitant]
  4. LEVOTHYROXINE (TABLETS) [Concomitant]
  5. DIGOXIN (TABLETS) [Concomitant]

REACTIONS (2)
  - Blood pressure increased [None]
  - Drug ineffective [None]
